FAERS Safety Report 7811484-0 (Version None)
Quarter: 2011Q4

REPORT INFORMATION
  Report Type: 
  Country: None (occurrence: None)
  Receive Date: 20111013
  Receipt Date: 20111013
  Transmission Date: 20120403
  Serious: No
  Sender: FDA-Public Use
  Company Number: None

PATIENT
  Age: 34 Year
  Sex: Female
  Weight: 104.32 kg

DRUGS (1)
  1. LEVAQUIN [Suspect]

REACTIONS (2)
  - NEUROPATHY PERIPHERAL [None]
  - LARYNGEAL DISORDER [None]
